FAERS Safety Report 9930676 (Version 1)
Quarter: 2014Q1

REPORT INFORMATION
  Report Type: Spontaneous
  Country: US (occurrence: US)
  Receive Date: 20140227
  Receipt Date: 20140227
  Transmission Date: 20141002
  Serious: No
  Sender: FDA-Public Use
  Company Number: US-AMGEN-USASP2014000101

PATIENT
  Age: 62 Year
  Sex: Male

DRUGS (4)
  1. ENBREL [Suspect]
     Indication: PSORIASIS
     Dosage: 50 MG, QWK
     Route: 058
     Dates: start: 20120405
  2. LISINOPRIL [Concomitant]
     Dosage: 10 MG, UNK
  3. CITALOPRAM HBR [Concomitant]
     Dosage: 10 MG, UNK
  4. CLOBETASOL 0.05% [Concomitant]
     Dosage: UNK

REACTIONS (4)
  - Thermal burn [Unknown]
  - Skin discolouration [Unknown]
  - Pruritus [Unknown]
  - Skin exfoliation [Unknown]
